FAERS Safety Report 12438796 (Version 2)
Quarter: 2016Q3

REPORT INFORMATION
  Report Type: Spontaneous
  Country: ES (occurrence: ES)
  Receive Date: 20160606
  Receipt Date: 20160704
  Transmission Date: 20161109
  Serious: Yes (Other)
  Sender: FDA-Public Use
  Company Number: PHHY2016ES077245

PATIENT
  Age: 9 Year
  Sex: Male
  Weight: 26 kg

DRUGS (1)
  1. FLUORESCEINE [Suspect]
     Active Substance: FLUORESCEIN SODIUM
     Indication: OPHTHALMOLOGICAL EXAMINATION
     Dosage: 300 MG, QD
     Route: 065
     Dates: start: 20160426, end: 20160426

REACTIONS (6)
  - Yellow skin [Unknown]
  - Discomfort [Unknown]
  - Back pain [Unknown]
  - Headache [Unknown]
  - Vomiting [Unknown]
  - Incorrect dosage administered [Unknown]

NARRATIVE: CASE EVENT DATE: 20160426
